FAERS Safety Report 19148802 (Version 28)
Quarter: 2025Q3

REPORT INFORMATION
  Report Type: Spontaneous
  Country: CA (occurrence: CA)
  Receive Date: 20210416
  Receipt Date: 20250902
  Transmission Date: 20251021
  Serious: Yes (Death, Life-Threatening, Hospitalization, Other)
  Sender: ANI
  Company Number: CA-ANIPHARMA-2021-CA-000457

PATIENT
  Age: 65 Year
  Sex: Male
  Weight: 96 kg

DRUGS (112)
  1. CANDESARTAN [Suspect]
     Active Substance: CANDESARTAN
     Indication: Product used for unknown indication
     Route: 048
  2. BETAMETHASONE\CLOTRIMAZOLE [Suspect]
     Active Substance: BETAMETHASONE\CLOTRIMAZOLE
     Route: 065
  3. AZATHIOPRINE SODIUM [Suspect]
     Active Substance: AZATHIOPRINE SODIUM
     Route: 065
  4. DILTIAZEM [Suspect]
     Active Substance: DILTIAZEM
     Route: 065
  5. ROSUVASTATIN [Concomitant]
     Active Substance: ROSUVASTATIN
     Route: 065
  6. PENICILLIN G SODIUM [Suspect]
     Active Substance: PENICILLIN G SODIUM
     Route: 065
  7. PENICILLIN V [Suspect]
     Active Substance: PENICILLIN V
     Route: 065
  8. FINASTERIDE [Suspect]
     Active Substance: FINASTERIDE
     Route: 065
  9. THIAMINE [Suspect]
     Active Substance: THIAMINE
     Route: 065
     Dates: start: 20231123, end: 20231124
  10. BUDESONIDE\FORMOTEROL FUMARATE DIHYDRATE [Suspect]
     Active Substance: BUDESONIDE\FORMOTEROL FUMARATE DIHYDRATE
     Route: 055
  11. BUDESONIDE [Suspect]
     Active Substance: BUDESONIDE
     Route: 055
  12. TAMSULOSIN HYDROCHLORIDE [Suspect]
     Active Substance: TAMSULOSIN HYDROCHLORIDE
  13. BENFOTIAMINE [Suspect]
     Active Substance: BENFOTIAMINE
  14. BASAGLAR [Suspect]
     Active Substance: INSULIN GLARGINE
     Route: 058
  15. CALCIUM SENNOSIDES [Suspect]
     Active Substance: SENNOSIDES
  16. NOVORAPID [Suspect]
     Active Substance: INSULIN ASPART
  17. SENNA ALATA WHOLE [Suspect]
     Active Substance: SENNA ALATA WHOLE
  18. ESCITALOPRAM [Suspect]
     Active Substance: ESCITALOPRAM OXALATE
  19. CARBAMAZEPINE [Suspect]
     Active Substance: CARBAMAZEPINE
  20. CALCIUM CARBONATE [Suspect]
     Active Substance: CALCIUM CARBONATE
  21. PENICILLIN G SODIUM [Suspect]
     Active Substance: PENICILLIN G SODIUM
  22. FORMOTEROL FUMARATE [Suspect]
     Active Substance: FORMOTEROL FUMARATE
  23. DOMPERIDONE MALEATE [Suspect]
     Active Substance: DOMPERIDONE MALEATE
     Route: 065
  24. FLUTICASONE [Suspect]
     Active Substance: FLUTICASONE
  25. UNSPECIFIED INGREDIENT [Suspect]
     Active Substance: UNSPECIFIED INGREDIENT
  26. FLOMAX [Suspect]
     Active Substance: TAMSULOSIN HYDROCHLORIDE
     Route: 065
  27. FUROSEMIDE [Suspect]
     Active Substance: FUROSEMIDE
     Route: 065
  28. GLUCAGON [Suspect]
     Active Substance: GLUCAGON
     Route: 065
  29. IMURAN [Suspect]
     Active Substance: AZATHIOPRINE
     Route: 065
  30. INSULIN GLARGINE [Suspect]
     Active Substance: INSULIN GLARGINE
     Route: 058
  31. LASIX [Suspect]
     Active Substance: FUROSEMIDE
     Route: 065
  32. LEVOFLOXACIN [Suspect]
     Active Substance: LEVOFLOXACIN
     Route: 065
  33. PANTOPRAZOLE MAGNESIUM [Suspect]
     Active Substance: PANTOPRAZOLE MAGNESIUM
     Route: 065
  34. MAGNESIUM OXIDE [Suspect]
     Active Substance: MAGNESIUM OXIDE
     Route: 065
  35. PREDNISONE [Suspect]
     Active Substance: PREDNISONE
     Route: 065
  36. ALBUTEROL [Suspect]
     Active Substance: ALBUTEROL
     Route: 065
  37. ALBUTEROL SULFATE [Suspect]
     Active Substance: ALBUTEROL SULFATE
     Route: 065
  38. HERBALS\SENNOSIDES [Suspect]
     Active Substance: HERBALS\SENNOSIDES
     Route: 065
  39. TAMSULOSIN [Suspect]
     Active Substance: TAMSULOSIN
     Route: 065
  40. TRELEGY ELLIPTA [Suspect]
     Active Substance: FLUTICASONE FUROATE\UMECLIDINIUM BROMIDE\VILANTEROL TRIFENATATE
     Route: 065
  41. ANORO ELLIPTA [Suspect]
     Active Substance: UMECLIDINIUM BROMIDE\VILANTEROL TRIFENATATE
     Route: 065
  42. ERGOCALCIFEROL [Suspect]
     Active Substance: ERGOCALCIFEROL
     Route: 065
  43. SULFAMETHOXAZOLE\TRIMETHOPRIM [Suspect]
     Active Substance: SULFAMETHOXAZOLE\TRIMETHOPRIM
     Route: 065
  44. CANDESARTAN CILEXETIL AND HYDROCHLOROTHIAZIDE [Suspect]
     Active Substance: CANDESARTAN CILEXETIL\HYDROCHLOROTHIAZIDE
     Indication: Product used for unknown indication
     Route: 048
  45. INSULIN ASPART [Suspect]
     Active Substance: INSULIN ASPART
     Route: 058
  46. LEXIN [Suspect]
     Active Substance: CEPHALEXIN
     Route: 065
  47. PANTOPRAZOLE SODIUM [Suspect]
     Active Substance: PANTOPRAZOLE SODIUM
     Route: 065
  48. CALCIUM SENNOSIDES [Suspect]
     Active Substance: SENNOSIDES
     Route: 065
  49. LEVOFLOXACIN [Suspect]
     Active Substance: LEVOFLOXACIN
     Route: 065
  50. VITAMIN D [Suspect]
     Active Substance: VITAMIN D NOS
     Route: 065
  51. BETAMETHASONE [Suspect]
     Active Substance: BETAMETHASONE
     Route: 065
  52. CLOTRIMAZOLE [Suspect]
     Active Substance: CLOTRIMAZOLE
     Route: 065
  53. BETA GLUCAN [Suspect]
     Active Substance: BETA GLUCAN
     Route: 065
  54. RHINOCORT [Suspect]
     Active Substance: BUDESONIDE
     Route: 065
  55. SULFADIAZINE\TRIMETHOPRIM [Suspect]
     Active Substance: SULFADIAZINE\TRIMETHOPRIM
     Route: 065
  56. PANTOPRAZOLE MAGNESIUM [Suspect]
     Active Substance: PANTOPRAZOLE MAGNESIUM
     Route: 065
  57. UMECLIDINIUM BROMIDE [Suspect]
     Active Substance: UMECLIDINIUM BROMIDE
     Route: 065
  58. UMECLIDINIUM BROMIDE\VILANTEROL TRIFENATATE [Suspect]
     Active Substance: UMECLIDINIUM BROMIDE\VILANTEROL TRIFENATATE
     Route: 065
  59. VITAMIN D3 [Suspect]
     Active Substance: CHOLECALCIFEROL
     Route: 065
  60. ALBUTEROL [Suspect]
     Active Substance: ALBUTEROL
     Route: 065
  61. CEFUROXIME AXETIL [Suspect]
     Active Substance: CEFUROXIME AXETIL
     Route: 065
  62. AZITHROMYCIN ANHYDROUS [Suspect]
     Active Substance: AZITHROMYCIN ANHYDROUS
     Route: 065
  63. CALCIUM CARBONATE [Suspect]
     Active Substance: CALCIUM CARBONATE
     Route: 065
  64. ALENDRONATE SODIUM [Suspect]
     Active Substance: ALENDRONATE SODIUM
     Route: 065
  65. SENNOSIDES [Suspect]
     Active Substance: SENNOSIDES
     Route: 065
  66. AZITHROMYCIN DIHYDRATE [Suspect]
     Active Substance: AZITHROMYCIN DIHYDRATE
     Route: 065
  67. CEPHALEXIN [Suspect]
     Active Substance: CEPHALEXIN
     Route: 065
  68. GLUCAGON HYDROCHLORIDE [Suspect]
     Active Substance: GLUCAGON HYDROCHLORIDE
     Route: 065
  69. MORNIFLUMATE [Suspect]
     Active Substance: MORNIFLUMATE
     Route: 065
  70. BETAMETHASONE DIPROPIONATE [Suspect]
     Active Substance: BETAMETHASONE DIPROPIONATE
     Route: 065
  71. CEFUROXIME [Suspect]
     Active Substance: CEFUROXIME
     Route: 065
  72. SENNA [Suspect]
     Active Substance: SENNOSIDES
     Route: 065
  73. METFORMIN HYDROCHLORIDE [Suspect]
     Active Substance: METFORMIN HYDROCHLORIDE
     Route: 065
  74. AZATHIOPRINE SODIUM [Suspect]
     Active Substance: AZATHIOPRINE SODIUM
     Route: 065
  75. CEFUROXIME AXETIL [Suspect]
     Active Substance: CEFUROXIME AXETIL
     Route: 065
  76. PANTOPRAZOLE SODIUM [Suspect]
     Active Substance: PANTOPRAZOLE SODIUM
     Route: 065
  77. CHOLECALCIFEROL [Suspect]
     Active Substance: CHOLECALCIFEROL
     Route: 065
  78. SULFADIAZINE [Suspect]
     Active Substance: SULFADIAZINE
     Route: 065
  79. TAMSULOSIN [Suspect]
     Active Substance: TAMSULOSIN
     Route: 065
  80. LEVOFLOXACIN [Suspect]
     Active Substance: LEVOFLOXACIN
     Route: 065
  81. FLOMAX [Suspect]
     Active Substance: TAMSULOSIN HYDROCHLORIDE
     Route: 065
  82. ALENDRONATE [Suspect]
     Active Substance: ALENDRONATE SODIUM
     Route: 065
  83. LIRAGLUTIDE [Suspect]
     Active Substance: LIRAGLUTIDE
     Route: 065
  84. PENICILLIN V [Concomitant]
     Active Substance: PENICILLIN V
     Route: 065
  85. SERTRALINE HYDROCHLORIDE [Suspect]
     Active Substance: SERTRALINE HYDROCHLORIDE
     Route: 065
  86. SPIRIVA [Suspect]
     Active Substance: TIOTROPIUM BROMIDE MONOHYDRATE
     Route: 065
  87. NUCALA [Suspect]
     Active Substance: MEPOLIZUMAB
     Route: 065
  88. LEVOTHYROXINE SODIUM [Suspect]
     Active Substance: LEVOTHYROXINE SODIUM
     Route: 065
  89. MONTELUKAST SODIUM [Suspect]
     Active Substance: MONTELUKAST SODIUM
     Route: 065
  90. PANTOPRAZOLE SODIUM [Suspect]
     Active Substance: PANTOPRAZOLE SODIUM
     Route: 065
  91. RUPATADINE [Suspect]
     Active Substance: RUPATADINE
     Route: 065
  92. AZATHIOPRINE [Suspect]
     Active Substance: AZATHIOPRINE
     Route: 065
  93. CHOLECALCIFEROL [Suspect]
     Active Substance: CHOLECALCIFEROL
     Route: 065
  94. SEPTRA [Suspect]
     Active Substance: SULFAMETHOXAZOLE\TRIMETHOPRIM
     Route: 065
  95. AZITHROMYCIN ANHYDROUS [Suspect]
     Active Substance: AZITHROMYCIN ANHYDROUS
     Route: 065
  96. LEVOFLOXACIN HEMIHYDRATE [Suspect]
     Active Substance: LEVOFLOXACIN
     Route: 065
  97. AMOXICILLIN\CLAVULANATE POTASSIUM [Suspect]
     Active Substance: AMOXICILLIN\CLAVULANATE POTASSIUM
     Route: 065
  98. BREO ELLIPTA [Suspect]
     Active Substance: FLUTICASONE FUROATE\VILANTEROL TRIFENATATE
     Route: 065
  99. CICLESONIDE [Suspect]
     Active Substance: CICLESONIDE
     Route: 065
  100. DOXAZOSIN [Suspect]
     Active Substance: DOXAZOSIN MESYLATE
     Route: 065
  101. DUTASTERIDE [Suspect]
     Active Substance: DUTASTERIDE
     Route: 065
  102. ELIQUIS [Suspect]
     Active Substance: APIXABAN
     Route: 065
  103. AZITHROMYCIN [Suspect]
     Active Substance: AZITHROMYCIN
     Route: 065
  104. ESCITALOPRAM [Suspect]
     Active Substance: ESCITALOPRAM OXALATE
     Route: 065
  105. FORMOTEROL [Suspect]
     Active Substance: FORMOTEROL
     Route: 065
  106. HYDROCHLOROTHIAZIDE [Suspect]
     Active Substance: HYDROCHLOROTHIAZIDE
     Route: 065
  107. MOXIFLOXACIN [Suspect]
     Active Substance: MOXIFLOXACIN
     Route: 065
  108. OMNARIS [Suspect]
     Active Substance: CICLESONIDE
     Route: 065
  109. ZENHALE [Suspect]
     Active Substance: FORMOTEROL FUMARATE\MOMETASONE FUROATE
     Route: 065
  110. SYMBICORT [Suspect]
     Active Substance: BUDESONIDE\FORMOTEROL FUMARATE DIHYDRATE
     Route: 055
  111. LEVOTHYROXINE [Concomitant]
     Active Substance: LEVOTHYROXINE
     Route: 065
  112. ADVAIR HFA [Suspect]
     Active Substance: FLUTICASONE PROPIONATE\SALMETEROL XINAFOATE
     Route: 065

REACTIONS (43)
  - Asthma [Fatal]
  - Pain in extremity [Fatal]
  - Pulmonary alveolar haemorrhage [Fatal]
  - Pulmonary fibrosis [Fatal]
  - Vasculitis [Fatal]
  - Respiratory symptom [Fatal]
  - Sleep disorder due to a general medical condition [Fatal]
  - Vasculitis [Fatal]
  - Wheezing [Fatal]
  - Condition aggravated [Fatal]
  - Hypothyroidism [Fatal]
  - Therapeutic product effect incomplete [Fatal]
  - Anxiety [Fatal]
  - Eosinophilic granulomatosis with polyangiitis [Fatal]
  - Full blood count abnormal [Fatal]
  - Pulmonary vasculitis [Fatal]
  - Antineutrophil cytoplasmic antibody positive [Fatal]
  - Forced expiratory volume decreased [Fatal]
  - Total lung capacity abnormal [Fatal]
  - Thrombosis [Fatal]
  - Dyspnoea [Fatal]
  - Spirometry abnormal [Fatal]
  - Pulmonary embolism [Fatal]
  - Productive cough [Fatal]
  - Normochromic normocytic anaemia [Fatal]
  - Nodule [Fatal]
  - Dust allergy [Fatal]
  - Conjunctivitis allergic [Fatal]
  - Arteriosclerosis coronary artery [Fatal]
  - Arteriosclerosis [Fatal]
  - Capillaritis [Fatal]
  - Haemoptysis [Fatal]
  - Pulmonary vasculitis [Fatal]
  - Hypoxia [Fatal]
  - Mite allergy [Fatal]
  - Mycotic allergy [Fatal]
  - Skin exfoliation [Not Recovered/Not Resolved]
  - Sleep disorder [Fatal]
  - Loss of personal independence in daily activities [Fatal]
  - Lung disorder [Fatal]
  - Neuritis [Fatal]
  - Neurological symptom [Fatal]
  - Obstructive airways disorder [Fatal]
